FAERS Safety Report 6443914-3 (Version None)
Quarter: 2009Q4

REPORT INFORMATION
  Report Type: 
  Country: None (occurrence: None)
  Receive Date: 20091113
  Receipt Date: 20091102
  Transmission Date: 20100525
  Serious: Yes (Life-Threatening, Hospitalization)
  Sender: FDA-Public Use
  Company Number: 2009AL007090

PATIENT
  Age: 82 Year
  Sex: Female

DRUGS (3)
  1. METFORMIN HYDROCHLORIDE [Suspect]
     Indication: TYPE 2 DIABETES MELLITUS
     Dosage: 500 MG
     Dates: start: 20091009, end: 20091019
  2. RIMACTANE [Concomitant]
  3. ZYVOXID [Concomitant]

REACTIONS (7)
  - BLOOD CREATININE INCREASED [None]
  - DEPRESSED LEVEL OF CONSCIOUSNESS [None]
  - INFECTION [None]
  - LACTIC ACIDOSIS [None]
  - OSTEOMYELITIS [None]
  - RESPIRATORY RATE INCREASED [None]
  - VOMITING [None]
